FAERS Safety Report 22643947 (Version 1)
Quarter: 2023Q2

REPORT INFORMATION
  Report Type: Spontaneous
  Country: CA (occurrence: CA)
  Receive Date: 20230627
  Receipt Date: 20230627
  Transmission Date: 20230721
  Serious: Yes (Hospitalization)
  Sender: FDA-Public Use
  Company Number: CA-BAYER-2023A086406

PATIENT
  Age: 61 Year
  Sex: Female
  Weight: 84 kg

DRUGS (13)
  1. XARELTO [Suspect]
     Active Substance: RIVAROXABAN
     Indication: Product used for unknown indication
     Dosage: 20 MG, QD
     Route: 048
  2. LASIX [Concomitant]
     Active Substance: FUROSEMIDE
  3. TYLENOL WITH CODEINE [Concomitant]
     Active Substance: ACETAMINOPHEN\CODEINE PHOSPHATE
  4. FOLIC ACID [Concomitant]
     Active Substance: FOLIC ACID
  5. GLICLAZIDE [Concomitant]
     Active Substance: GLICLAZIDE
  6. LORAZEPAM [Concomitant]
     Active Substance: LORAZEPAM
  7. POTASSIUM CHLORIDE [Concomitant]
     Active Substance: POTASSIUM CHLORIDE
  8. METOPROLOL [Concomitant]
     Active Substance: METOPROLOL
  9. OXYCODONE AND ACETAMINOPHEN [Concomitant]
     Active Substance: ACETAMINOPHEN\OXYCODONE HYDROCHLORIDE
  10. ENALAPRIL [Concomitant]
     Active Substance: ENALAPRIL
  11. GABAPENTIN [Concomitant]
     Active Substance: GABAPENTIN
  12. METFORMIN [Concomitant]
     Active Substance: METFORMIN HYDROCHLORIDE
  13. ONGLYZA [Concomitant]
     Active Substance: SAXAGLIPTIN HYDROCHLORIDE

REACTIONS (5)
  - Confusional state [Recovered/Resolved]
  - Asthenia [Recovered/Resolved]
  - Lethargy [Recovered/Resolved]
  - Haemoglobin decreased [Recovered/Resolved]
  - Melaena [Unknown]
